FAERS Safety Report 5533947-3 (Version None)
Quarter: 2007Q4

REPORT INFORMATION
  Report Type: 
  Country: None (occurrence: None)
  Receive Date: 20071129
  Receipt Date: 20071115
  Transmission Date: 20080405
  Serious: Yes (Other)
  Sender: FDA-Public Use
  Company Number: 17738

PATIENT
  Age: 44 Year
  Sex: Female
  Weight: 74 kg

DRUGS (14)
  1. METHOTREXATE [Suspect]
     Dosage: 25 MG  IM
     Route: 030
     Dates: start: 20050920, end: 20051129
  2. METHOTREXATE [Suspect]
     Dosage: 15 MG  IM
     Route: 030
     Dates: start: 20051130, end: 20051228
  3. METHOTREXATE [Suspect]
     Dosage: 20 MG WEEKLY PO
     Route: 048
     Dates: start: 20060118
  4. ADCAL-D3 [Concomitant]
  5. CARMELLOSE SODIUM [Concomitant]
  6. CLOTRIMAZOLE [Concomitant]
  7. CO-PROXAMOL [Concomitant]
  8. FERROUS SULFATE TAB [Concomitant]
  9. FLUCONAZOLE [Concomitant]
  10. FOLIC ACID [Concomitant]
  11. INFLUENZA VIRUS [Concomitant]
  12. ISPAGHULA [Concomitant]
  13. MERCILON [Concomitant]
  14. POLYVINYL ALCOHOL [Concomitant]

REACTIONS (5)
  - BACK PAIN [None]
  - DRUG INEFFECTIVE [None]
  - PAIN IN EXTREMITY [None]
  - PHARYNGOLARYNGEAL PAIN [None]
  - SCIATICA [None]
